FAERS Safety Report 9846401 (Version 1)
Quarter: 2013Q4

REPORT INFORMATION
  Report Type: Spontaneous
  Country: US (occurrence: None)
  Receive Date: 20131224
  Receipt Date: 20131224
  Transmission Date: 20140711
  Serious: Yes (Other)
  Sender: FDA-Public Use
  Company Number: PHEH2013US018658

PATIENT
  Age: 41 Year
  Sex: Female
  Weight: 79.8 kg

DRUGS (4)
  1. GILENYA (FINGOLIMOD) CAPSULE [Suspect]
     Route: 048
     Dates: start: 20121215
  2. SYNTHROID(LEVOTHYROXIN SODIUM) [Concomitant]
  3. RESTASIS(CICLOSPORIN) [Concomitant]
  4. MULTIVITAMIN(ASCORBIC ACID, CALCIUM PANTOTHENATE, ERGOCALCIFEROL,NICOTINAMIDE,PYRIDOXINE HYDROCHLORIDE, RETINOL, RIBOFLAVIN, THIAMINE HYDROCHLORIDE) POWDER [Concomitant]

REACTIONS (1)
  - Herpes zoster [None]
